FAERS Safety Report 18941834 (Version 1)
Quarter: 2021Q1

REPORT INFORMATION
  Report Type: Spontaneous
  Country: NO (occurrence: NO)
  Receive Date: 20210225
  Receipt Date: 20210225
  Transmission Date: 20210420
  Serious: Yes (Disabling)
  Sender: FDA-Public Use
  Company Number: NO-TEVA-2021-NO-1883133

PATIENT
  Age: 34 Year
  Sex: Male
  Weight: 64 kg

DRUGS (2)
  1. LEVAXIN TAB 125 MIKROG [Concomitant]
     Indication: THYROID DISORDER
     Dosage: 125 MILLIGRAM DAILY;
  2. SILDENAFIL ACTAVIS TAB 100 MG [Suspect]
     Active Substance: SILDENAFIL
     Indication: ERECTILE DYSFUNCTION
     Route: 065

REACTIONS (6)
  - Hypoacusis [Not Recovered/Not Resolved]
  - Tinnitus [Not Recovered/Not Resolved]
  - Visual impairment [Recovered/Resolved]
  - Palpitations [Recovered/Resolved]
  - Photophobia [Unknown]
  - Dyschromatopsia [Unknown]

NARRATIVE: CASE EVENT DATE: 2019
